FAERS Safety Report 6116051-5 (Version None)
Quarter: 2009Q1

REPORT INFORMATION
  Report Type: 
  Country: None (occurrence: None)
  Receive Date: 20090314
  Receipt Date: 20081212
  Transmission Date: 20090719
  Serious: No
  Sender: FDA-Public Use
  Company Number: US-ABBOTT-08P-163-0492934-00

PATIENT
  Sex: Female
  Weight: 61.29 kg

DRUGS (14)
  1. HUMIRA [Suspect]
     Indication: RHEUMATOID ARTHRITIS
     Route: 058
     Dates: start: 20060601
  2. METHOTREXATE [Concomitant]
     Indication: RHEUMATOID ARTHRITIS
     Route: 050
  3. PLAQUENIL [Concomitant]
     Indication: RHEUMATOID ARTHRITIS
     Route: 048
  4. LASIX [Concomitant]
     Indication: SWELLING
     Route: 048
  5. LASIX [Concomitant]
     Indication: RHEUMATOID ARTHRITIS
  6. KLOR-CON [Concomitant]
     Indication: ELECTROLYTE SUBSTITUTION THERAPY
     Route: 048
  7. ARTHROTEX [Concomitant]
     Indication: RHEUMATOID ARTHRITIS
     Route: 048
  8. BONIVA [Concomitant]
     Indication: OSTEOPENIA
     Route: 048
  9. ATENOLOL [Concomitant]
     Indication: HYPERTENSION
     Route: 048
  10. LOVASTATIN [Concomitant]
     Indication: BLOOD CHOLESTEROL INCREASED
     Route: 048
  11. NEXIUM [Concomitant]
     Indication: DYSPEPSIA
     Route: 048
  12. LORTAB [Concomitant]
     Indication: PAIN
     Dosage: 7.5 MG
  13. FOLIC ACID [Concomitant]
     Indication: STOMATITIS
     Route: 048
  14. FOLIC ACID [Concomitant]
     Indication: PROPHYLAXIS

REACTIONS (1)
  - PROCEDURAL COMPLICATION [None]
